FAERS Safety Report 12105408 (Version 1)
Quarter: 2016Q1

REPORT INFORMATION
  Report Type: Spontaneous
  Country: US (occurrence: None)
  Receive Date: 20160222
  Receipt Date: 20160222
  Transmission Date: 20160526
  Serious: No
  Sender: FDA-Public Use
  Company Number: None

PATIENT
  Age: 48 Year
  Sex: Female
  Weight: 68.04 kg

DRUGS (4)
  1. SHAKLEE OSTEOMATRIX [Concomitant]
     Active Substance: VITAMINS
  2. VITAMIN [Concomitant]
     Active Substance: VITAMINS
  3. VITALEA [Concomitant]
  4. METOPROLOL. [Suspect]
     Active Substance: METOPROLOL
     Indication: ARRHYTHMIA
     Dosage: 1/2 TAB TWICE DAILY TAKEN BY MOUTH
     Route: 048
     Dates: start: 20160216, end: 20160217

REACTIONS (6)
  - Dizziness [None]
  - Headache [None]
  - Chest pain [None]
  - Product substitution issue [None]
  - Heart rate abnormal [None]
  - Dyspnoea [None]

NARRATIVE: CASE EVENT DATE: 20160217
